FAERS Safety Report 25850381 (Version 2)
Quarter: 2025Q3

REPORT INFORMATION
  Report Type: Spontaneous
  Country: US (occurrence: US)
  Receive Date: 20250926
  Receipt Date: 20250930
  Transmission Date: 20251021
  Serious: No
  Sender: BAUSCH AND LOMB
  Company Number: US-BAUSCHBL-2025BNL028760

PATIENT
  Age: 86 Year
  Sex: Female

DRUGS (6)
  1. LUMIFY [Suspect]
     Active Substance: BRIMONIDINE TARTRATE
     Indication: Ocular hyperaemia
     Route: 047
  2. LUMIFY [Suspect]
     Active Substance: BRIMONIDINE TARTRATE
  3. MIEBO [Suspect]
     Active Substance: PERFLUOROHEXYLOCTANE
     Indication: Ocular hyperaemia
     Dosage: 1 DROP EVERY MORNING
     Route: 047
  4. MIEBO [Suspect]
     Active Substance: PERFLUOROHEXYLOCTANE
     Indication: Product use in unapproved indication
  5. BLINK TEARS PRESERVATIVE FREE [Suspect]
     Active Substance: POLYETHYLENE GLYCOL 400
     Indication: Ocular hyperaemia
     Route: 047
  6. BLINK TEARS PRESERVATIVE FREE [Suspect]
     Active Substance: POLYETHYLENE GLYCOL 400
     Indication: Product use in unapproved indication

REACTIONS (4)
  - Drug ineffective [Unknown]
  - Patient dissatisfaction with treatment [Unknown]
  - Product use in unapproved indication [Unknown]
  - Inappropriate schedule of product administration [Unknown]
